FAERS Safety Report 4960976-0 (Version None)
Quarter: 2006Q1

REPORT INFORMATION
  Report Type: 
  Country: None (occurrence: None)
  Receive Date: 20060328
  Receipt Date: 20060313
  Transmission Date: 20060701
  Serious: Yes (Death)
  Sender: FDA-Public Use
  Company Number: DK200601003588

PATIENT
  Age: 75 Year
  Sex: Female
  Weight: 60 kg

DRUGS (5)
  1. ZXYPEXA (OLANZAPINE ) TABLET [Suspect]
     Indication: DELUSION
     Dosage: 2.5 MG, DAILY (1/D), ORAL
     Route: 048
     Dates: start: 20050719
  2. ARICEPT [Concomitant]
  3. ZOK-ZID (HYDROCHLOROTHIAZIDE, METOPROLOL) [Concomitant]
  4. FOSAMAX [Concomitant]
  5. KODEIN-MAGNYL (ACETYLSALICYLIC ACID, CODEINE PHOSPHATE, MAGNESIUM OXID [Concomitant]

REACTIONS (3)
  - DRUG INTERACTION [None]
  - MALAISE [None]
  - SUDDEN DEATH [None]
